FAERS Safety Report 8514135-5 (Version None)
Quarter: 2012Q3

REPORT INFORMATION
  Report Type: 
  Country: None (occurrence: None)
  Receive Date: 20120717
  Receipt Date: 20120709
  Transmission Date: 20120928
  Serious: Yes (Hospitalization, Other)
  Sender: FDA-Public Use
  Company Number: CA-JNJFOC-20120613400

PATIENT
  Sex: Female
  Weight: 81 kg

DRUGS (4)
  1. REMICADE [Suspect]
     Indication: RHEUMATOID ARTHRITIS
     Route: 042
     Dates: end: 20111114
  2. METHOTREXATE [Concomitant]
     Route: 065
  3. REMICADE [Suspect]
     Dosage: INTERVAL: AT WEEKS 0,2 AND 6
     Route: 042
     Dates: start: 20040928
  4. FOLIC ACID [Concomitant]
     Route: 065

REACTIONS (2)
  - PNEUMONIA [None]
  - PULMONARY FIBROSIS [None]
